FAERS Safety Report 5035895-4 (Version None)
Quarter: 2006Q2

REPORT INFORMATION
  Report Type: 
  Country: None (occurrence: None)
  Receive Date: 20060622
  Receipt Date: 20060614
  Transmission Date: 20061013
  Serious: Yes (Hospitalization)
  Sender: FDA-Public Use
  Company Number: 2006-02391

PATIENT
  Sex: Female

DRUGS (1)
  1. PREDNISONE [Suspect]

REACTIONS (3)
  - HALLUCINATION, AUDITORY [None]
  - HALLUCINATION, VISUAL [None]
  - WEIGHT DECREASED [None]
